FAERS Safety Report 4611020-6 (Version None)
Quarter: 2005Q1

REPORT INFORMATION
  Report Type: 
  Country: None (occurrence: None)
  Receive Date: 20050316
  Receipt Date: 20050316
  Transmission Date: 20050727
  Serious: No
  Sender: FDA-Public Use
  Company Number: None

PATIENT
  Age: 51 Year
  Sex: Female
  Weight: 88.7 kg

DRUGS (13)
  1. DOXIL [Suspect]
     Indication: ACUTE LYMPHOCYTIC LEUKAEMIA
     Dosage: 50 MG   OVER 1 HOUR   INTRAVENOU
     Route: 042
     Dates: start: 20050314, end: 20050314
  2. DOXIL [Suspect]
     Indication: NEOPLASM RECURRENCE
     Dosage: 50 MG   OVER 1 HOUR   INTRAVENOU
     Route: 042
     Dates: start: 20050314, end: 20050314
  3. FLUCONAZOLE [Concomitant]
  4. VELCADE [Concomitant]
  5. CHLORHEXIDINE [Concomitant]
  6. ACYCLOVIR [Concomitant]
  7. GATIFLOXACIN [Concomitant]
  8. SERTRALINE HCL [Concomitant]
  9. ZOLPIDEM [Concomitant]
  10. PANTOPRAZOLE [Concomitant]
  11. SUCRALAFATE [Concomitant]
  12. PHENYTOIN [Concomitant]
  13. KEFLEX [Concomitant]

REACTIONS (4)
  - DYSPNOEA [None]
  - FEELING HOT [None]
  - FLUSHING [None]
  - INFUSION RELATED REACTION [None]
